FAERS Safety Report 6240141-X (Version None)
Quarter: 2009Q2

REPORT INFORMATION
  Report Type: 
  Country: None (occurrence: None)
  Receive Date: 20090623
  Receipt Date: 20090617
  Transmission Date: 20091009
  Serious: Yes (Hospitalization)
  Sender: FDA-Public Use
  Company Number: US-ASTRAZENECA-2009UW15498

PATIENT
  Age: 5 Year
  Sex: Female
  Weight: 24.9 kg

DRUGS (5)
  1. PULMICORT RESPULES [Suspect]
     Indication: ASTHMA
     Dosage: 0.5 MG/ML
     Route: 055
     Dates: start: 20041001
  2. PULMICORT RESPULES [Suspect]
     Dosage: 0.5 MG/ML
     Route: 055
  3. SINGULAIR [Concomitant]
  4. ALBUTEROL [Concomitant]
  5. ZYRTEC [Concomitant]

REACTIONS (4)
  - COLLAPSE OF LUNG [None]
  - DRUG INEFFECTIVE [None]
  - PNEUMONIA [None]
  - WHEEZING [None]
